FAERS Safety Report 22160909 (Version 1)
Quarter: 2023Q1

REPORT INFORMATION
  Report Type: Spontaneous
  Country: US (occurrence: None)
  Receive Date: 20230330
  Receipt Date: 20230330
  Transmission Date: 20230418
  Serious: Yes (Death)
  Sender: FDA-Public Use
  Company Number: None

PATIENT
  Age: 64 Year
  Sex: Female
  Weight: 104.42 kg

DRUGS (19)
  1. IBRANCE [Suspect]
     Active Substance: PALBOCICLIB
     Indication: Breast cancer female
     Dosage: OTHER FREQUENCY : 21D ON 7D OFF;?
     Route: 048
  2. BUDESONIDE [Concomitant]
     Active Substance: BUDESONIDE
  3. CITALOPRAM [Concomitant]
     Active Substance: CITALOPRAM HYDROBROMIDE
  4. FAMOTIDINE [Concomitant]
     Active Substance: FAMOTIDINE
  5. FASLODEX [Concomitant]
     Active Substance: FULVESTRANT
  6. FENTANYL [Concomitant]
     Active Substance: FENTANYL
  7. GABAPENTIN [Concomitant]
     Active Substance: GABAPENTIN
  8. IBUPROFEN [Concomitant]
     Active Substance: IBUPROFEN
  9. ALBUTEROL\IPRATROPIUM [Concomitant]
     Active Substance: ALBUTEROL\IPRATROPIUM
  10. LORAZEPAM [Concomitant]
     Active Substance: LORAZEPAM
  11. LOVENOX [Concomitant]
     Active Substance: ENOXAPARIN SODIUM
  12. MAGNESIUM [Concomitant]
     Active Substance: MAGNESIUM
  13. MORPHINE [Concomitant]
     Active Substance: MORPHINE
  14. PREDNISONE [Concomitant]
     Active Substance: PREDNISONE
  15. PROCHLORPERAZINE [Concomitant]
     Active Substance: PROCHLORPERAZINE
  16. REXULTI [Concomitant]
     Active Substance: BREXPIPRAZOLE
  17. TRAZODONE [Concomitant]
     Active Substance: TRAZODONE HYDROCHLORIDE
  18. TYLENOL W/ CODEINE#3 [Concomitant]
  19. ZOLPIDEM [Concomitant]
     Active Substance: ZOLPIDEM TARTRATE

REACTIONS (1)
  - Death [None]
